FAERS Safety Report 19129736 (Version 2)
Quarter: 2021Q2

REPORT INFORMATION
  Report Type: Report from Study
  Country: None (occurrence: DE)
  Receive Date: 20210413
  Receipt Date: 20210419
  Transmission Date: 20210717
  Serious: Yes (Hospitalization)
  Sender: FDA-Public Use
  Company Number: DE-ABBVIE-21K-062-3852581-00

PATIENT
  Age: 44 Year
  Sex: Male
  Weight: 52 kg

DRUGS (5)
  1. DIAZEPAM. [Concomitant]
     Active Substance: DIAZEPAM
     Indication: DRUG DEPENDENCE
     Dates: end: 20191217
  2. DIAZEPAM. [Concomitant]
     Active Substance: DIAZEPAM
     Indication: PRODUCT USED FOR UNKNOWN INDICATION
     Dates: start: 20191218, end: 20200614
  3. IBUPROFEN. [Concomitant]
     Active Substance: IBUPROFEN
     Route: 048
     Dates: start: 20201218
  4. MAVIRET [Suspect]
     Active Substance: GLECAPREVIR\PIBRENTASVIR
     Indication: CHRONIC HEPATITIS C
     Dosage: 100 MG GLECAPREVIR/40 MG PIBRENTASVIR TABLETS
     Route: 048
     Dates: start: 20191202, end: 20200126
  5. IBUPROFEN. [Concomitant]
     Active Substance: IBUPROFEN
     Indication: DRUG DEPENDENCE
     Dates: end: 20201217

REACTIONS (23)
  - Alanine aminotransferase increased [Unknown]
  - Renal injury [Recovered/Resolved]
  - Multiple injuries [Unknown]
  - C-reactive protein increased [Unknown]
  - Red blood cell count decreased [Unknown]
  - Platelet count increased [Unknown]
  - Infection [Recovering/Resolving]
  - Haematocrit decreased [Unknown]
  - White blood cell count increased [Unknown]
  - Fall [Recovered/Resolved]
  - Pollakiuria [Recovered/Resolved]
  - Bladder pain [Recovered/Resolved]
  - Enterococcal infection [Recovered/Resolved]
  - Blood urine present [Unknown]
  - Gamma-glutamyltransferase increased [Unknown]
  - Blood ethanol increased [Unknown]
  - Haemoglobin decreased [Unknown]
  - Pain in extremity [Unknown]
  - Urinary tract infection [Unknown]
  - Skin laceration [Unknown]
  - Enterococcal infection [Unknown]
  - Activated partial thromboplastin time prolonged [Unknown]
  - Renal pain [Unknown]

NARRATIVE: CASE EVENT DATE: 202010
